FAERS Safety Report 5256510-0 (Version None)
Quarter: 2007Q1

REPORT INFORMATION
  Report Type: 
  Country: None (occurrence: None)
  Receive Date: 20061204
  Receipt Date: 20060810
  Transmission Date: 20070707
  Serious: No
  Sender: FDA-Public Use
  Company Number: 2006-BP-09312BP

PATIENT
  Sex: Male

DRUGS (3)
  1. SPIRIVA [Suspect]
     Dosage: 36 MCG (18 MCG, BID), IH
     Route: 055
     Dates: start: 20060804, end: 20060805
  2. TEGRETOL [Concomitant]
  3. LAMICTAL [Concomitant]

REACTIONS (2)
  - RENAL PAIN [None]
  - URINARY RETENTION [None]
